FAERS Safety Report 6473874-0 (Version None)
Quarter: 2009Q4

REPORT INFORMATION
  Report Type: 
  Country: None (occurrence: None)
  Receive Date: 20091204
  Receipt Date: 20091125
  Transmission Date: 20100525
  Serious: Yes (Hospitalization)
  Sender: FDA-Public Use
  Company Number: JP-ASTRAZENECA-2009SE08536

PATIENT
  Age: 10874 Day
  Sex: Male
  Weight: 55.5 kg

DRUGS (28)
  1. SEROQUEL [Suspect]
     Indication: SCHIZOPHRENIA
     Route: 048
     Dates: start: 20040303, end: 20050318
  2. SEROQUEL [Suspect]
     Route: 048
     Dates: start: 20040605, end: 20040605
  3. SEROQUEL [Suspect]
     Route: 048
     Dates: start: 20040927, end: 20040927
  4. SEROQUEL [Suspect]
     Route: 048
     Dates: start: 20050312, end: 20050312
  5. SEROQUEL [Suspect]
     Dosage: 100-600 MG UID
     Route: 048
     Dates: start: 20050903, end: 20091017
  6. SEROQUEL [Suspect]
     Route: 048
     Dates: start: 20060217, end: 20060217
  7. SEROQUEL [Suspect]
     Route: 048
     Dates: start: 20071029, end: 20071029
  8. SEROQUEL [Suspect]
     Route: 048
     Dates: start: 20090703, end: 20090703
  9. SEROQUEL [Suspect]
     Route: 048
     Dates: start: 20090814, end: 20090814
  10. SEROQUEL [Suspect]
     Route: 048
     Dates: start: 20090930, end: 20090930
  11. HALOPERIDOL [Suspect]
     Indication: SCHIZOPHRENIA
     Dosage: 0.75 - 22.5 MG DAILY
     Route: 048
     Dates: start: 20030507, end: 20030913
  12. HALOPERIDOL [Suspect]
     Dosage: 6 - 25 MG DAILY
     Route: 048
     Dates: start: 20050312
  13. RISPERIDONE [Suspect]
     Indication: SCHIZOPHRENIA
     Dosage: 2 - 3 MG UID
     Route: 048
     Dates: start: 20040731, end: 20041002
  14. CHLORPROMAZINE HCL [Suspect]
     Indication: SCHIZOPHRENIA
     Dosage: 100 - 500 MG UID
     Route: 048
     Dates: start: 20030913, end: 20040605
  15. CHLORPROMAZINE HCL [Suspect]
     Route: 048
     Dates: start: 20041002, end: 20041211
  16. AMOBAN [Concomitant]
     Route: 048
     Dates: start: 20040301
  17. HALCION [Concomitant]
     Route: 048
     Dates: start: 20040301
  18. ARTANE [Concomitant]
     Indication: PARKINSONISM
     Route: 048
     Dates: start: 20030301
  19. LEVOMEPROMAZINE [Concomitant]
     Route: 048
     Dates: start: 20030218
  20. NEULEPTIL [Concomitant]
     Route: 048
     Dates: start: 20050430, end: 20050917
  21. BROMPERIDOL [Concomitant]
     Route: 048
     Dates: start: 20030802, end: 20030813
  22. SULTOPRIDE [Concomitant]
     Route: 048
     Dates: start: 20030507, end: 20030913
  23. ZOTEPINE [Concomitant]
     Route: 048
     Dates: start: 20030323, end: 20030512
  24. VEGETAMIN B [Concomitant]
     Route: 048
     Dates: start: 20030507, end: 20091030
  25. HALOPERIDOL DECANOATE [Concomitant]
     Dates: start: 20030906
  26. BIPERIDEN HYDROCHLORIDE TAB [Concomitant]
     Indication: PARKINSONISM
     Route: 048
     Dates: start: 20030218, end: 20030913
  27. ABILIFY [Concomitant]
     Route: 048
     Dates: start: 20090912
  28. VEGETAMIN A [Concomitant]
     Route: 048
     Dates: start: 20091031

REACTIONS (1)
  - WHITE BLOOD CELL COUNT DECREASED [None]
